FAERS Safety Report 13591343 (Version 2)
Quarter: 2017Q2

REPORT INFORMATION
  Report Type: Other
  Country: CA (occurrence: CA)
  Receive Date: 20170530
  Receipt Date: 20170627
  Transmission Date: 20170830
  Serious: Yes (Death, Hospitalization, Other)
  Sender: FDA-Public Use
  Company Number: CA-ACTELION-A-CH2017-154087

PATIENT
  Age: 32 Year
  Sex: Female

DRUGS (5)
  1. EPOPROSTENOL SODIUM. [Suspect]
     Active Substance: EPOPROSTENOL SODIUM
     Indication: PULMONARY ARTERIAL HYPERTENSION
     Dosage: UNK
     Route: 042
     Dates: start: 201601
  2. TADALAFIL [Concomitant]
     Active Substance: TADALAFIL
     Dosage: 40 MG, QAM
     Dates: start: 201201, end: 201408
  3. OXYGEN. [Concomitant]
     Active Substance: OXYGEN
  4. TADALAFIL [Concomitant]
     Active Substance: TADALAFIL
     Dosage: UNK
  5. AMBRISENTAN [Concomitant]
     Active Substance: AMBRISENTAN
     Dosage: 10 UNK, QAM
     Dates: start: 201205

REACTIONS (11)
  - Troponin increased [Unknown]
  - Stent placement [Unknown]
  - Chest discomfort [Unknown]
  - Cardiogenic shock [Fatal]
  - Dyspnoea [Unknown]
  - Angioplasty [Unknown]
  - Angina pectoris [Unknown]
  - Oxygen saturation decreased [Fatal]
  - Acute myocardial infarction [Unknown]
  - Electrocardiogram ST segment elevation [Unknown]
  - Sinus tachycardia [Unknown]

NARRATIVE: CASE EVENT DATE: 201601
